FAERS Safety Report 21328328 (Version 3)
Quarter: 2023Q2

REPORT INFORMATION
  Report Type: Report from Study
  Country: US (occurrence: US)
  Receive Date: 20220913
  Receipt Date: 20230607
  Transmission Date: 20230721
  Serious: Yes (Other)
  Sender: FDA-Public Use
  Company Number: US-ABBVIE-22K-163-4419492-00

PATIENT
  Age: 64 Year
  Sex: Female

DRUGS (2)
  1. HUMIRA [Suspect]
     Active Substance: ADALIMUMAB
     Indication: Rheumatoid arthritis
     Dosage: CITRATE FREE/FORM STRENGTH: 40 MG
     Route: 058
     Dates: start: 20180907
  2. JANSSEN COVID-19 VACCINE [Concomitant]
     Active Substance: AD26.COV2.S
     Indication: COVID-19 immunisation
     Dosage: FIRST DOSE ONE IN ONCE
     Route: 030
     Dates: start: 20210506, end: 20210506

REACTIONS (17)
  - Hip arthroplasty [Recovering/Resolving]
  - Pain [Recovering/Resolving]
  - Joint range of motion decreased [Unknown]
  - Knee deformity [Unknown]
  - Skin mass [Unknown]
  - Arthralgia [Unknown]
  - Crepitations [Unknown]
  - Osteoarthritis [Unknown]
  - Obesity [Unknown]
  - Polyarthritis [Unknown]
  - Bone cyst [Unknown]
  - Exostosis [Unknown]
  - Joint space narrowing [Unknown]
  - Joint arthroplasty [Unknown]
  - Scar [Unknown]
  - Upper respiratory tract infection [Unknown]
  - Knee arthroplasty [Recovering/Resolving]

NARRATIVE: CASE EVENT DATE: 20220501
